FAERS Safety Report 12497847 (Version 2)
Quarter: 2016Q3

REPORT INFORMATION
  Report Type: Spontaneous
  Country: GB (occurrence: GB)
  Receive Date: 20160625
  Receipt Date: 20160711
  Transmission Date: 20161109
  Serious: Yes (Hospitalization, Other)
  Sender: FDA-Public Use
  Company Number: GB-APOTEX-2016AP009339

PATIENT
  Age: 49 Year
  Sex: Female

DRUGS (9)
  1. PAROXETINE ORAL SOLUTION [Suspect]
     Active Substance: PAROXETINE
     Indication: DEPRESSION
     Dosage: 10MG/5ML
     Route: 048
     Dates: start: 20020729
  2. FLUOXETINE [Concomitant]
     Active Substance: FLUOXETINE HYDROCHLORIDE
     Indication: PRODUCT USED FOR UNKNOWN INDICATION
     Dosage: UNK
     Route: 065
     Dates: start: 200301
  3. MIRTAZAPINE. [Concomitant]
     Active Substance: MIRTAZAPINE
     Indication: PRODUCT USED FOR UNKNOWN INDICATION
     Dosage: UNK
     Route: 065
     Dates: start: 2003
  4. PROZAC [Concomitant]
     Active Substance: FLUOXETINE HYDROCHLORIDE
     Indication: PRODUCT USED FOR UNKNOWN INDICATION
     Route: 065
     Dates: start: 20021030
  5. PAXIL [Suspect]
     Active Substance: PAROXETINE HYDROCHLORIDE
     Indication: PRODUCT USED FOR UNKNOWN INDICATION
     Dosage: 20 MG, QD
     Route: 065
     Dates: start: 20010131, end: 20030124
  6. DIAZEPAM. [Concomitant]
     Active Substance: DIAZEPAM
     Indication: PRODUCT USED FOR UNKNOWN INDICATION
     Route: 065
     Dates: start: 20020730
  7. PAROXETINE. [Suspect]
     Active Substance: PAROXETINE
     Indication: DEPRESSION
     Dosage: 20 MG,QD
     Route: 065
     Dates: start: 20000901
  8. PAXIL [Suspect]
     Active Substance: PAROXETINE HYDROCHLORIDE
     Dosage: 20 MG, QD
     Route: 048
     Dates: start: 20030124
  9. PAROXETINE ORAL SOLUTION [Suspect]
     Active Substance: PAROXETINE
     Dosage: 5 MG
     Route: 048

REACTIONS (18)
  - Depression [Unknown]
  - Confusional state [Unknown]
  - Abnormal behaviour [Unknown]
  - Agitation [Unknown]
  - Abnormal dreams [Unknown]
  - Feeling abnormal [Unknown]
  - Sensory disturbance [Unknown]
  - Nausea [Unknown]
  - Tremor [Unknown]
  - Anxiety [Unknown]
  - Panic attack [Unknown]
  - Suicidal ideation [Unknown]
  - Crying [Unknown]
  - Hypoaesthesia [Unknown]
  - Diarrhoea [Unknown]
  - Withdrawal syndrome [Unknown]
  - Paraesthesia [Unknown]
  - Hyperhidrosis [Unknown]

NARRATIVE: CASE EVENT DATE: 200308
